FAERS Safety Report 14662952 (Version 2)
Quarter: 2018Q2

REPORT INFORMATION
  Report Type: Spontaneous
  Country: US (occurrence: US)
  Receive Date: 20180321
  Receipt Date: 20180506
  Transmission Date: 20180711
  Serious: No
  Sender: FDA-Public Use
  Company Number: US-BIOGEN-2016BI00280890

PATIENT
  Age: 37 Year
  Sex: Female

DRUGS (4)
  1. TECFIDERA [Suspect]
     Active Substance: DIMETHYL FUMARATE
     Dosage: MAINTENANCE DOSE
     Route: 048
     Dates: end: 201607
  2. TECFIDERA [Suspect]
     Active Substance: DIMETHYL FUMARATE
     Dosage: MAINTENANCE DOSE
     Route: 065
     Dates: start: 20151120, end: 20160401
  3. TECFIDERA [Suspect]
     Active Substance: DIMETHYL FUMARATE
     Dosage: STARTING DOSE
     Route: 048
  4. TECFIDERA [Suspect]
     Active Substance: DIMETHYL FUMARATE
     Indication: MULTIPLE SCLEROSIS
     Dosage: MAINTENANCE DOSE
     Route: 048
     Dates: start: 201509

REACTIONS (8)
  - Alopecia [Recovered/Resolved]
  - Optic neuritis [Not Recovered/Not Resolved]
  - Multiple sclerosis relapse [Recovered/Resolved]
  - Sensory loss [Not Recovered/Not Resolved]
  - Multiple sclerosis [Unknown]
  - Optic neuropathy [Not Recovered/Not Resolved]
  - Drug ineffective [Recovered/Resolved]
  - Eyelid ptosis [Not Recovered/Not Resolved]

NARRATIVE: CASE EVENT DATE: 2013
